FAERS Safety Report 6344029-5 (Version None)
Quarter: 2009Q3

REPORT INFORMATION
  Report Type: 
  Country: None (occurrence: None)
  Receive Date: 20090908
  Receipt Date: 20090826
  Transmission Date: 20100115
  Serious: Yes (Other)
  Sender: FDA-Public Use
  Company Number: CA-PFIZER INC-2009261821

PATIENT
  Age: 50 Year

DRUGS (4)
  1. CHAMPIX [Suspect]
     Indication: SMOKING CESSATION THERAPY
  2. SALBUTAMOL SULFATE [Interacting]
     Indication: ASTHMA
     Dosage: 100 UG, 4X/DAY
     Route: 055
  3. SPIRIVA [Interacting]
     Indication: ASTHMA
     Dosage: 18 UG, 1X/DAY
     Route: 055
  4. ADVAIR HFA [Interacting]
     Indication: ASTHMA
     Dosage: 250 UNK, 2X/DAY
     Route: 055

REACTIONS (2)
  - COMA [None]
  - DRUG INTERACTION [None]
